FAERS Safety Report 25839160 (Version 4)
Quarter: 2025Q4

REPORT INFORMATION
  Report Type: Spontaneous
  Country: US (occurrence: US)
  Receive Date: 20250924
  Receipt Date: 20251120
  Transmission Date: 20260119
  Serious: No
  Sender: KARYOPHARM THERAPEUTICS
  Company Number: US-KARYOPHARM-2025KPT100759

PATIENT

DRUGS (19)
  1. SELINEXOR [Suspect]
     Active Substance: SELINEXOR
     Indication: Plasma cell myeloma
     Dosage: 40 MG WEEKLY ON DAYS 1 8 15 EVERY 28 DAYS
     Route: 048
     Dates: start: 20250915
  2. AJOVY [Concomitant]
     Active Substance: FREMANEZUMAB-VFRM
  3. ANDROGEL [Concomitant]
     Active Substance: TESTOSTERONE
  4. BACLOFEN [Concomitant]
     Active Substance: BACLOFEN
  5. BOTOX [Concomitant]
     Active Substance: ONABOTULINUMTOXINA
  6. DEXAMETHASONE [Concomitant]
     Active Substance: DEXAMETHASONE
  7. DIAZEPAM [Concomitant]
     Active Substance: DIAZEPAM
  8. EMEND [Concomitant]
     Active Substance: APREPITANT
  9. GABAPENTIN [Concomitant]
     Active Substance: GABAPENTIN
  10. OLANZAPINE [Concomitant]
     Active Substance: OLANZAPINE
  11. PROCHLORPERAZINE MALEATE [Concomitant]
     Active Substance: PROCHLORPERAZINE MALEATE
  12. ONDANSETRON [Concomitant]
     Active Substance: ONDANSETRON
  13. OMEPRAZOLE [Concomitant]
     Active Substance: OMEPRAZOLE
  14. METOPROLOL TARTRATE [Concomitant]
     Active Substance: METOPROLOL TARTRATE
  15. METHYLENE BLUE [Concomitant]
     Active Substance: METHYLENE BLUE
  16. HYDROCHLOROTHIAZIDE [Concomitant]
     Active Substance: HYDROCHLOROTHIAZIDE
  17. OLMESARTAN MEDOXOMIL [Concomitant]
     Active Substance: OLMESARTAN MEDOXOMIL
  18. POMALYST [Concomitant]
     Active Substance: POMALIDOMIDE
  19. LYRICA [Concomitant]
     Active Substance: PREGABALIN

REACTIONS (8)
  - Rash [Not Recovered/Not Resolved]
  - Cough [Unknown]
  - Vision blurred [Unknown]
  - Neuropathy peripheral [Unknown]
  - Paronychia [Unknown]
  - Night sweats [Unknown]
  - Plantar fasciitis [Unknown]
  - Platelet count decreased [Unknown]

NARRATIVE: CASE EVENT DATE: 20250101
